FAERS Safety Report 8448230-6 (Version None)
Quarter: 2012Q2

REPORT INFORMATION
  Report Type: 
  Country: None (occurrence: None)
  Receive Date: 20120613
  Receipt Date: 20120611
  Transmission Date: 20120825
  Serious: Yes (Other)
  Sender: FDA-Public Use
  Company Number: ADR-2012-00616

PATIENT
  Sex: Male

DRUGS (3)
  1. LIORESAL [Suspect]
     Indication: SPINAL CORD DISORDER
  2. LIORESAL [Suspect]
     Indication: SPINAL CORD INJURY
  3. LIORESAL [Suspect]
     Indication: MUSCLE SPASTICITY

REACTIONS (2)
  - HAEMATOMA [None]
  - INCISION SITE HAEMORRHAGE [None]
